FAERS Safety Report 5468170-4 (Version None)
Quarter: 2007Q3

REPORT INFORMATION
  Report Type: 
  Country: None (occurrence: None)
  Receive Date: 20070926
  Receipt Date: 20070913
  Transmission Date: 20080115
  Serious: Yes (Other)
  Sender: FDA-Public Use
  Company Number: US-ELI_LILLY_AND_COMPANY-US200709003046

PATIENT
  Age: 82 Year
  Sex: Female

DRUGS (2)
  1. FORTEO [Suspect]
     Indication: OSTEOPOROSIS
     Dosage: UNK, EACH EVENING
  2. FORTEO [Suspect]
     Dosage: UNK, EACH MORNING

REACTIONS (8)
  - FALL [None]
  - FEAR [None]
  - FRACTURE [None]
  - RASH [None]
  - ROAD TRAFFIC ACCIDENT [None]
  - SENSITIVITY OF TEETH [None]
  - SOMNOLENCE [None]
  - TOOTH ABSCESS [None]
